FAERS Safety Report 21883164 (Version 1)
Quarter: 2023Q1

REPORT INFORMATION
  Report Type: Spontaneous
  Country: NL (occurrence: NL)
  Receive Date: 20230119
  Receipt Date: 20230119
  Transmission Date: 20230417
  Serious: Yes (Hospitalization, Other)
  Sender: FDA-Public Use
  Company Number: None

PATIENT
  Sex: Male
  Weight: 78 kg

DRUGS (8)
  1. JARDIANCE [Suspect]
     Active Substance: EMPAGLIFLOZIN
     Indication: Type 2 diabetes mellitus
     Dosage: 0 MILLIGRAM
     Dates: start: 20220125, end: 20230102
  2. ENALAPRIL [Concomitant]
     Active Substance: ENALAPRIL
     Indication: Product used for unknown indication
  3. INSULINE GLARGINE 100E/ML INJVLST / LANTUS INJ 100E/ML PATROON 3ML [Concomitant]
     Indication: Product used for unknown indication
     Dosage: INJECTIEVLOEISTOF, 100 EENHEDEN/ML (EENHEDEN PER MILLILITER)
  4. SIMVASTATIN [Concomitant]
     Active Substance: SIMVASTATIN
     Indication: Product used for unknown indication
     Dosage: FILMOMHULDE
  5. AMLODIPINE TABLET   5MG / Brand name not specified [Concomitant]
     Indication: Product used for unknown indication
  6. GLICLAZIDE TABLET MGA 80MG / Brand name not specified [Concomitant]
     Indication: Product used for unknown indication
     Dosage: TABLET MET GEREGULEERDE AFGIFTE,
  7. FUROSEMIDE TABLET 20MG / Brand name not specified [Concomitant]
     Indication: Product used for unknown indication
  8. METFORMINE TABLET MGA  500MG / GLUCIENT SR TABLET MVA 500MG [Concomitant]
     Indication: Product used for unknown indication
     Dosage: TABLET MET GEREGULEERDE AFGIFTE,

REACTIONS (1)
  - Orchitis [Recovering/Resolving]
